FAERS Safety Report 8357160-X (Version None)
Quarter: 2012Q2

REPORT INFORMATION
  Report Type: 
  Country: None (occurrence: None)
  Receive Date: 20120510
  Receipt Date: 20120504
  Transmission Date: 20120825
  Serious: Yes (Other)
  Sender: FDA-Public Use
  Company Number: ACO_30105_2012

PATIENT
  Age: 24 Year
  Sex: Male

DRUGS (1)
  1. AMPYRA [Suspect]
     Indication: PRODUCT USED FOR UNKNOWN INDICATION
     Dates: start: 20110101, end: 20110101

REACTIONS (4)
  - FALL [None]
  - CONVULSION [None]
  - SKIN INJURY [None]
  - MULTIPLE SCLEROSIS RELAPSE [None]
